FAERS Safety Report 20620042 (Version 2)
Quarter: 2022Q2

REPORT INFORMATION
  Report Type: Report from Study
  Country: NL (occurrence: NL)
  Receive Date: 20220322
  Receipt Date: 20220509
  Transmission Date: 20220721
  Serious: Yes (Life-Threatening, Hospitalization, Other)
  Sender: FDA-Public Use
  Company Number: NL-ROCHE-3012914

PATIENT
  Age: 66 Year
  Sex: Male

DRUGS (8)
  1. CAPECITABINE [Suspect]
     Active Substance: CAPECITABINE
     Indication: Colorectal cancer metastatic
     Dosage: UNK
     Route: 048
     Dates: start: 20211013
  2. CAPECITABINE [Suspect]
     Active Substance: CAPECITABINE
     Dosage: UNK
     Route: 048
     Dates: start: 20211103
  3. CAPECITABINE [Suspect]
     Active Substance: CAPECITABINE
     Dosage: ON 27/OCT/2021, RECEIVED MOST RECENT DOSEON 30/NOV/2021, HE RECEIVED MOST RECENT DOSE
     Route: 048
     Dates: start: 20210901
  4. OXALIPLATIN [Suspect]
     Active Substance: OXALIPLATIN
     Indication: Colorectal cancer metastatic
     Dosage: ON 03/NOV/2021, HE RECEIVED MOST RECENT DOSE
     Route: 042
     Dates: start: 20211013
  5. OXALIPLATIN [Suspect]
     Active Substance: OXALIPLATIN
     Dosage: ON 03/NOV/2021, ON 27/OCT/2021, ON 30/NOV/2021, HE RECEIVED MOST RECENT DOSE
     Route: 042
     Dates: start: 20211013
  6. OXALIPLATIN [Suspect]
     Active Substance: OXALIPLATIN
     Dosage: ON 03/NOV/2021, HE RECEIVED MOST RECENT DOS
     Route: 042
     Dates: start: 20210901
  7. BEVACIZUMAB [Suspect]
     Active Substance: BEVACIZUMAB
     Indication: Colorectal cancer metastatic
     Dosage: ON 03/NOV/2021, HE RECEIVED MOST RECENT DOSE
     Route: 042
     Dates: start: 20211013
  8. BEVACIZUMAB [Suspect]
     Active Substance: BEVACIZUMAB
     Dosage: ON 27/OCT/2021, HE RECEIVED MOST RECENT DOSE
     Route: 042
     Dates: start: 20210901

REACTIONS (5)
  - Anastomotic leak [Recovered/Resolved]
  - Wound dehiscence [Recovered/Resolved]
  - Ileus paralytic [Recovered/Resolved]
  - Wound infection [Recovered/Resolved]
  - Abdominal abscess [Recovered/Resolved]

NARRATIVE: CASE EVENT DATE: 20211220
